FAERS Safety Report 7226074-0 (Version None)
Quarter: 2011Q1

REPORT INFORMATION
  Report Type: 
  Country: None (occurrence: None)
  Receive Date: 20110113
  Receipt Date: 20110105
  Transmission Date: 20110831
  Serious: Yes (Other)
  Sender: FDA-Public Use
  Company Number: NL-GENENTECH-311499

PATIENT
  Sex: Male
  Weight: 72 kg

DRUGS (9)
  1. CARMUSTINE [Suspect]
     Indication: CENTRAL NERVOUS SYSTEM LYMPHOMA
     Dosage: 188 MG, UNK
     Route: 042
     Dates: start: 20101207
  2. PROMETHAZINE [Concomitant]
     Indication: NAUSEA
     Dosage: 25 MG, UNK
     Route: 048
     Dates: start: 20101126, end: 20101214
  3. PREDNISOLONE [Suspect]
     Indication: CENTRAL NERVOUS SYSTEM LYMPHOMA
     Dosage: 110 MG, UNK
     Route: 048
     Dates: start: 20101204
  4. METHOTREXATE SODIUM [Suspect]
     Route: 042
  5. DEXAMETHASON [Concomitant]
     Indication: PRODUCT USED FOR UNKNOWN INDICATION
     Dosage: 4 MG, UNK
     Route: 048
     Dates: start: 20101115, end: 20101215
  6. METHOTREXATE SODIUM [Suspect]
     Indication: CENTRAL NERVOUS SYSTEM LYMPHOMA
     Dosage: 5.6 G, UNK
     Route: 042
     Dates: start: 20101204
  7. RITUXIMAB [Suspect]
     Indication: CENTRAL NERVOUS SYSTEM LYMPHOMA
     Dosage: 700 MG, UNK
     Route: 042
     Dates: start: 20101203
  8. TENIPOSIDE [Suspect]
     Indication: CENTRAL NERVOUS SYSTEM LYMPHOMA
     Dosage: 188 MG, UNK
     Route: 042
     Dates: start: 20101205
  9. PANTOZOL [Concomitant]
     Indication: DYSPEPSIA
     Dosage: 40 MG, UNK
     Route: 048
     Dates: start: 20101215, end: 20101215

REACTIONS (1)
  - RENAL FAILURE ACUTE [None]
